FAERS Safety Report 6681634-0 (Version None)
Quarter: 2010Q2

REPORT INFORMATION
  Report Type: 
  Country: None (occurrence: None)
  Receive Date: 20100414
  Receipt Date: 20100405
  Transmission Date: 20101027
  Serious: Yes (Hospitalization, Other)
  Sender: FDA-Public Use
  Company Number: DE-SANOFI-AVENTIS-200911994DE

PATIENT
  Age: 74 Year
  Sex: Male

DRUGS (7)
  1. DOCETAXEL [Suspect]
     Route: 042
     Dates: start: 20090612, end: 20090612
  2. BLINDED THERAPY [Suspect]
     Route: 048
     Dates: start: 20090612
  3. FENTANYL [Concomitant]
     Indication: DRUG USE FOR UNKNOWN INDICATION
     Dosage: DOSE AS USED: NOT REPORTED
     Dates: start: 20090401
  4. ENALAPRIL MALEATE [Concomitant]
     Indication: DRUG USE FOR UNKNOWN INDICATION
     Dosage: DOSE AS USED: NOT REPORTED
     Dates: start: 20040101
  5. PANTOPRAZOLE SODIUM [Concomitant]
     Indication: DRUG USE FOR UNKNOWN INDICATION
     Dosage: DOSE AS USED: NOT REPORTED
     Dates: start: 20090526
  6. PREDNISOLONE [Concomitant]
     Dosage: DOSE AS USED: NOT REPORTED
  7. DEXAMETHASONE [Concomitant]
     Dosage: DOSE AS USED: NOT REPORTED

REACTIONS (8)
  - ANAEMIA [None]
  - DEHYDRATION [None]
  - HYPOCALCAEMIA [None]
  - LEUKOPENIA [None]
  - NAUSEA [None]
  - NEUTROPHIL COUNT DECREASED [None]
  - PAIN [None]
  - VOMITING [None]
